FAERS Safety Report 6143264-9 (Version None)
Quarter: 2009Q2

REPORT INFORMATION
  Report Type: 
  Country: None (occurrence: None)
  Receive Date: 20090403
  Receipt Date: 20090402
  Transmission Date: 20091009
  Serious: Yes (Other)
  Sender: FDA-Public Use
  Company Number: A0776510A

PATIENT
  Age: 28 Year
  Sex: Female

DRUGS (2)
  1. ALLI [Suspect]
     Route: 048
     Dates: start: 20090317, end: 20090324
  2. ONE A DAY [Concomitant]

REACTIONS (12)
  - ABDOMINAL PAIN [None]
  - APHONIA [None]
  - CHOLECYSTITIS [None]
  - DISCOMFORT [None]
  - DYSPHONIA [None]
  - GALLBLADDER DISORDER [None]
  - GALLBLADDER PAIN [None]
  - HEADACHE [None]
  - HYPERSENSITIVITY [None]
  - NAUSEA [None]
  - PAIN [None]
  - PHARYNGEAL OEDEMA [None]
